FAERS Safety Report 10465046 (Version 1)
Quarter: 2014Q3

REPORT INFORMATION
  Report Type: Spontaneous
  Country: US (occurrence: US)
  Receive Date: 20140919
  Receipt Date: 20140919
  Transmission Date: 20150326
  Serious: No
  Sender: FDA-Public Use
  Company Number: US-BAUSCH-SYM-2014-19634

PATIENT
  Sex: Female
  Weight: 54.48 kg

DRUGS (3)
  1. ATRALIN [Suspect]
     Active Substance: TRETINOIN
     Indication: ACNE
     Dosage: ONCE DAILY
     Route: 061
     Dates: start: 201403
  2. ORTHO-TRICYCLIC(BIRTH CONTROL PILLS) [Concomitant]
     Indication: CONTRACEPTION
  3. MONODOX [Concomitant]
     Active Substance: DOXYCYCLINE
     Indication: ACNE

REACTIONS (3)
  - Acne [Not Recovered/Not Resolved]
  - Application site erythema [Not Recovered/Not Resolved]
  - Drug ineffective [Not Recovered/Not Resolved]

NARRATIVE: CASE EVENT DATE: 2014
